FAERS Safety Report 6534694-1 (Version None)
Quarter: 2010Q1

REPORT INFORMATION
  Report Type: 
  Country: None (occurrence: None)
  Receive Date: 20100112
  Receipt Date: 20100104
  Transmission Date: 20100710
  Serious: Yes (Hospitalization)
  Sender: FDA-Public Use
  Company Number: JP-MERCK-0912USA03385

PATIENT
  Age: 77 Year
  Sex: Female
  Weight: 41 kg

DRUGS (2)
  1. PRIMAXIN [Suspect]
     Indication: OCULAR HYPERAEMIA
     Route: 041
     Dates: start: 20090414, end: 20090414
  2. VALPROATE SODIUM [Suspect]
     Route: 048

REACTIONS (2)
  - CONVULSION [None]
  - DELIRIUM [None]
